FAERS Safety Report 24848589 (Version 1)
Quarter: 2025Q1

REPORT INFORMATION
  Report Type: Spontaneous
  Country: IT (occurrence: IT)
  Receive Date: 20250116
  Receipt Date: 20250116
  Transmission Date: 20250409
  Serious: Yes (Life-Threatening, Hospitalization)
  Sender: SANDOZ
  Company Number: None

PATIENT
  Age: 71 Year
  Sex: Female

DRUGS (2)
  1. ERELZI [Suspect]
     Active Substance: ETANERCEPT-SZZS
     Indication: Rheumatoid arthritis
     Route: 058
     Dates: start: 202308, end: 20241210
  2. METHOTREXATE [Concomitant]
     Active Substance: METHOTREXATE
     Indication: Rheumatoid arthritis
     Route: 058

REACTIONS (1)
  - Cutaneous B-cell lymphoma [Unknown]

NARRATIVE: CASE EVENT DATE: 20240901
